FAERS Safety Report 7590456-8 (Version None)
Quarter: 2011Q3

REPORT INFORMATION
  Report Type: 
  Country: None (occurrence: None)
  Receive Date: 20110705
  Receipt Date: 20110624
  Transmission Date: 20111222
  Serious: Yes (Hospitalization, Other)
  Sender: FDA-Public Use
  Company Number: US-SANOFI-AVENTIS-2011SA041481

PATIENT
  Age: 45 Year
  Sex: Female

DRUGS (4)
  1. SOLOSTAR [Suspect]
     Dates: end: 20110530
  2. LANTUS [Suspect]
     Dosage: DOSE:40 UNIT(S)
     Route: 058
     Dates: end: 20110530
  3. SOLOSTAR [Suspect]
     Dates: start: 20110530
  4. LANTUS [Suspect]
     Dosage: DOSE:45 UNIT(S)
     Route: 058
     Dates: start: 20110530

REACTIONS (3)
  - BLOOD COUNT ABNORMAL [None]
  - DIABETIC KETOACIDOSIS [None]
  - ABSCESS [None]
